FAERS Safety Report 25029453 (Version 2)
Quarter: 2025Q1

REPORT INFORMATION
  Report Type: Spontaneous
  Country: US (occurrence: US)
  Receive Date: 20250303
  Receipt Date: 20250325
  Transmission Date: 20250409
  Serious: Yes (Other)
  Sender: APOTEX
  Company Number: US-APOTEX-2025AP002547

PATIENT

DRUGS (2)
  1. VELCADE [Suspect]
     Active Substance: BORTEZOMIB
     Indication: Warm autoimmune haemolytic anaemia
     Dosage: 1.3 MILLIGRAM/SQ. METER, Q.WK.
     Route: 042
     Dates: start: 20230424
  2. VELCADE [Suspect]
     Active Substance: BORTEZOMIB
     Route: 042
     Dates: end: 20240930

REACTIONS (4)
  - Thrombocytopenia [Unknown]
  - Hypogammaglobulinaemia [Unknown]
  - Neuropathy peripheral [Unknown]
  - Injection site reaction [Unknown]
